FAERS Safety Report 6009959-2 (Version None)
Quarter: 2008Q4

REPORT INFORMATION
  Report Type: 
  Country: None (occurrence: None)
  Receive Date: 20081218
  Receipt Date: 20081212
  Transmission Date: 20090506
  Serious: Yes (Hospitalization)
  Sender: FDA-Public Use
  Company Number: US-JNJFOC-20081201281

PATIENT
  Sex: Female
  Weight: 63.5 kg

DRUGS (4)
  1. DURAGESIC-100 [Suspect]
     Route: 062
  2. DURAGESIC-100 [Suspect]
     Indication: ARTHRALGIA
     Route: 062
  3. DURAGESIC-100 [Suspect]
     Indication: INTERVERTEBRAL DISC DEGENERATION
     Route: 062
  4. SYNTHROID [Concomitant]
     Indication: HYPERTHYROIDISM
     Route: 048

REACTIONS (6)
  - ARTHROPATHY [None]
  - BIPOLAR DISORDER [None]
  - CARDIAC MYXOMA [None]
  - INCORRECT DRUG ADMINISTRATION DURATION [None]
  - OSTEOARTHRITIS [None]
  - PSYCHOTIC DISORDER [None]
